FAERS Safety Report 8115726-6 (Version None)
Quarter: 2012Q1

REPORT INFORMATION
  Report Type: 
  Country: None (occurrence: None)
  Receive Date: 20120112
  Receipt Date: 20120110
  Transmission Date: 20120608
  Serious: Yes (Death)
  Sender: FDA-Public Use
  Company Number: 2011030646

PATIENT
  Age: 88 Year
  Sex: Male
  Weight: 73.0291 kg

DRUGS (16)
  1. HIZENTRA [Suspect]
  2. DIGOXIN [Concomitant]
  3. SINGULAIR [Concomitant]
  4. ADVAIR DISKUS 100/50 [Concomitant]
  5. CLARITIN [Concomitant]
  6. HIZENTRA [Suspect]
  7. ALBUTEROL [Concomitant]
  8. MULTAQ [Concomitant]
  9. TRAZODONE HCL [Concomitant]
  10. AVODART [Concomitant]
  11. FUROSEMIDE [Concomitant]
  12. ASTELIN (DIPROPHYLLINE) [Concomitant]
  13. VIVAGLOBIN [Concomitant]
  14. HIZENTRA [Suspect]
     Indication: IMMUNODEFICIENCY COMMON VARIABLE
     Dosage: SEE IMAGE
     Route: 058
     Dates: start: 20110208
  15. PANTOPRAZOLE [Concomitant]
  16. COUMADIN [Concomitant]

REACTIONS (1)
  - DEATH [None]
